FAERS Safety Report 24912171 (Version 1)
Quarter: 2025Q1

REPORT INFORMATION
  Report Type: Spontaneous
  Country: US (occurrence: None)
  Receive Date: 20250131
  Receipt Date: 20250131
  Transmission Date: 20250409
  Serious: Yes (Hospitalization)
  Sender: FDA-CTU
  Company Number: None

PATIENT
  Age: 54 Year
  Sex: Female
  Weight: 61.2 kg

DRUGS (6)
  1. TIRZEPATIDE [Suspect]
     Active Substance: TIRZEPATIDE
     Indication: Weight control
     Route: 030
     Dates: start: 20250113, end: 20250114
  2. TIRZEPATIDE [Suspect]
     Active Substance: TIRZEPATIDE
     Indication: Glycosylated haemoglobin increased
  3. SYNTHROID [Concomitant]
     Active Substance: LEVOTHYROXINE SODIUM
  4. PAROXETINE [Concomitant]
     Active Substance: PAROXETINE
  5. ESTRADIOL [Concomitant]
     Active Substance: ESTRADIOL
  6. PROGESTERONE [Concomitant]
     Active Substance: PROGESTERONE

REACTIONS (5)
  - Anxiety [None]
  - Fear [None]
  - Self-destructive behaviour [None]
  - Suicidal ideation [None]
  - Nausea [None]

NARRATIVE: CASE EVENT DATE: 20250114
